FAERS Safety Report 15638128 (Version 4)
Quarter: 2019Q3

REPORT INFORMATION
  Report Type: Spontaneous
  Country: CA (occurrence: CA)
  Receive Date: 20181120
  Receipt Date: 20190731
  Transmission Date: 20191004
  Serious: Yes (Death, Hospitalization, Other)
  Sender: FDA-Public Use
  Company Number: CA-TEVA-2018-CA-977815

PATIENT
  Age: 67 Year
  Sex: Male

DRUGS (8)
  1. ETOPOSIDE. [Suspect]
     Active Substance: ETOPOSIDE
     Indication: NEUROENDOCRINE CARCINOMA METASTATIC
     Dosage: FOUR CYCLES
     Route: 065
  2. IRINOTECAN [Suspect]
     Active Substance: IRINOTECAN
     Indication: NEUROENDOCRINE CARCINOMA METASTATIC
     Dosage: FOUR CYCLES
     Route: 042
  3. CARBOPLATIN. [Suspect]
     Active Substance: CARBOPLATIN
     Indication: PANCREATIC CARCINOMA
  4. CISPLATIN. [Suspect]
     Active Substance: CISPLATIN
     Indication: PANCREATIC CARCINOMA
  5. CARBOPLATIN. [Suspect]
     Active Substance: CARBOPLATIN
     Indication: NEUROENDOCRINE CARCINOMA METASTATIC
     Dosage: FOUR CYCLES
     Route: 042
  6. CISPLATIN. [Suspect]
     Active Substance: CISPLATIN
     Indication: NEUROENDOCRINE CARCINOMA METASTATIC
     Dosage: FOUR CYCLES
     Route: 065
  7. ETOPOSIDE. [Suspect]
     Active Substance: ETOPOSIDE
     Indication: PANCREATIC CARCINOMA
  8. IRINOTECAN [Suspect]
     Active Substance: IRINOTECAN
     Indication: PANCREATIC CARCINOMA

REACTIONS (6)
  - General physical health deterioration [Unknown]
  - Product use in unapproved indication [Unknown]
  - Pancreatic neuroendocrine tumour metastatic [Fatal]
  - Drug ineffective [Unknown]
  - Metastases to liver [Fatal]
  - Malignant neoplasm progression [Fatal]
